FAERS Safety Report 8891119 (Version 2)
Quarter: 2013Q2

REPORT INFORMATION
  Report Type: Spontaneous
  Country: DE (occurrence: DE)
  Receive Date: 20121107
  Receipt Date: 20130416
  Transmission Date: 20140414
  Serious: Yes (Death)
  Sender: FDA-Public Use
  Company Number: DE-PFIZER INC-2012276975

PATIENT
  Age: 63 Year
  Sex: Male
  Weight: 57.3 kg

DRUGS (10)
  1. ZYVOXID [Suspect]
     Indication: ENDOCARDITIS ENTEROCOCCAL
     Dosage: 600 MG, 2X/DAY
     Route: 042
     Dates: start: 20120824
  2. DOXYCYCLINE [Concomitant]
     Indication: ENDOCARDITIS ENTEROCOCCAL
     Dosage: 100 MG, UNK
     Route: 042
     Dates: start: 20120823
  3. CIATYL [Concomitant]
     Indication: SCHIZOPHRENIA
     Dosage: 8 DROPS IN THE MORNING, 7 DROPS IN THE NOON AND 8 DROPS IN THE EVENING
     Route: 048
  4. TOREM [Concomitant]
     Indication: CARDIAC FAILURE
     Dosage: 10 MG, 1X/DAY
     Route: 048
  5. TOREM [Concomitant]
     Indication: CARDIAC FAILURE
  6. ASS [Concomitant]
     Indication: ANGIOPATHY
     Dosage: 100 MG, UNK
     Route: 048
  7. ASS [Concomitant]
     Indication: ANGIOSCLEROSIS
  8. PIPERACILLIN SODIUM W/TAZOBACTAM SODIUM [Concomitant]
  9. CLARITHROMYCIN [Concomitant]
  10. METRONIDAZOLE [Concomitant]

REACTIONS (1)
  - Sudden death [Fatal]
